FAERS Safety Report 11865269 (Version 1)
Quarter: 2015Q4

REPORT INFORMATION
  Report Type: Spontaneous
  Country: FR (occurrence: FR)
  Receive Date: 20151223
  Receipt Date: 20151223
  Transmission Date: 20160305
  Serious: Yes (Hospitalization)
  Sender: FDA-Public Use
  Company Number: FR-PFIZER INC-2015451660

PATIENT
  Age: 51 Year
  Sex: Male

DRUGS (8)
  1. LAROXYL [Suspect]
     Active Substance: AMITRIPTYLINE
     Indication: NEURALGIA
     Dosage: 5 GTT, 3X/DAY
     Route: 048
     Dates: start: 201508, end: 20151202
  2. JANUMET [Concomitant]
     Active Substance: METFORMIN HYDROCHLORIDE\SITAGLIPTIN PHOSPHATE
  3. TRAMADOL HYDROCHLORIDE. [Concomitant]
     Active Substance: TRAMADOL HYDROCHLORIDE
  4. PRAVASTATIN SODIUM. [Concomitant]
     Active Substance: PRAVASTATIN SODIUM
  5. LYRICA [Suspect]
     Active Substance: PREGABALIN
     Indication: NEURALGIA
     Dosage: 200 MG, DAILY (50 MG MORNING, 50 MG NOON, 100 MG EVENING)
     Route: 048
     Dates: start: 201508, end: 20151202
  6. LEXOMIL ROCHE COMPRIME BAGUETTE [Suspect]
     Active Substance: BROMAZEPAM
     Indication: NEURALGIA
     Dosage: 1 DF, DAILY (0.25 DF MORNING, 0.25 DF NOON, 0.5 DF EVENING)
     Route: 048
     Dates: start: 201508
  7. KARDEGIC [Concomitant]
     Active Substance: ASPIRIN LYSINE
  8. HYTACAND [Concomitant]
     Active Substance: CANDESARTAN CILEXETIL\HYDROCHLOROTHIAZIDE

REACTIONS (1)
  - Hepatitis [Unknown]

NARRATIVE: CASE EVENT DATE: 20151130
